FAERS Safety Report 15319157 (Version 1)
Quarter: 2018Q3

REPORT INFORMATION
  Report Type: Spontaneous
  Country: US (occurrence: US)
  Receive Date: 20180820
  Receipt Date: 20180820
  Transmission Date: 20181010
  Serious: Yes (Hospitalization)
  Sender: FDA-Public Use
  Company Number: None

PATIENT
  Age: 26 Year
  Sex: Female
  Weight: 61.23 kg

DRUGS (1)
  1. MIRENA [Suspect]
     Active Substance: LEVONORGESTREL

REACTIONS (8)
  - Neck pain [None]
  - Vision blurred [None]
  - Dizziness [None]
  - Weight decreased [None]
  - Alopecia [None]
  - Anxiety [None]
  - Presyncope [None]
  - Menstruation irregular [None]
